FAERS Safety Report 4575930-0 (Version None)
Quarter: 2005Q1

REPORT INFORMATION
  Report Type: 
  Country: None (occurrence: None)
  Receive Date: 20050201
  Receipt Date: 20050201
  Transmission Date: 20050727
  Serious: Yes (Hospitalization, Other)
  Sender: FDA-Public Use
  Company Number: None

PATIENT
  Age: 49 Year
  Sex: Male
  Weight: 40.8237 kg

DRUGS (1)
  1. AFRIN [Suspect]
     Dosage: 5 SPRAYS ORAL
     Route: 048
     Dates: start: 20041230, end: 20041230

REACTIONS (8)
  - ACCIDENTAL EXPOSURE [None]
  - APHONIA [None]
  - BRONCHOSPASM [None]
  - DYSPHONIA [None]
  - DYSPNOEA [None]
  - ERYTHEMA [None]
  - FEELING HOT [None]
  - MEDICATION ERROR [None]
